FAERS Safety Report 8875613 (Version 4)
Quarter: 2014Q2

REPORT INFORMATION
  Report Type: Report from Study
  Country: US (occurrence: US)
  Receive Date: 20121030
  Receipt Date: 20140519
  Transmission Date: 20141212
  Serious: Yes (Hospitalization)
  Sender: FDA-Public Use
  Company Number: US-ASTELLAS-2012US010476

PATIENT
  Age: 3 Year
  Sex: Male
  Weight: 15 kg

DRUGS (14)
  1. TACROLIMUS [Suspect]
     Indication: DERMATITIS ATOPIC
     Dosage: 0.03 %, TWICE DAILY
     Route: 061
     Dates: start: 20111223
  2. DESONIDE [Concomitant]
     Indication: DERMATITIS ATOPIC
     Dosage: 0.05 %, TWICE DAILY
     Route: 061
     Dates: start: 20121012
  3. IMURAN                             /00001501/ [Concomitant]
     Indication: DERMATITIS ATOPIC
     Route: 048
     Dates: start: 20120224
  4. IMURAN                             /00001501/ [Concomitant]
     Route: 061
  5. FLUOCINONIDE [Concomitant]
     Indication: DERMATITIS ATOPIC
     Dosage: 0.05 %, TWICE DAILY
     Route: 061
     Dates: start: 20120212
  6. ATARAX                             /00058401/ [Concomitant]
     Indication: DERMATITIS ATOPIC
     Route: 048
     Dates: start: 2010
  7. ZYRTEC [Concomitant]
     Indication: ASTHMA
     Route: 048
     Dates: start: 2010
  8. SINGULAIR [Concomitant]
     Indication: ASTHMA
     Route: 048
     Dates: start: 2010
  9. BACTRIM [Concomitant]
     Indication: STAPHYLOCOCCAL INFECTION
     Dosage: 104 MG, BID
     Route: 048
     Dates: start: 20120520
  10. BENADRYL                           /00000402/ [Concomitant]
     Indication: PRODUCT USED FOR UNKNOWN INDICATION
     Dosage: UNK UNK, UNKNOWN/D
     Route: 048
  11. EPIPEN JR [Concomitant]
     Indication: HYPERSENSITIVITY
     Dosage: 0.3 ML, AS NEEDED
     Route: 030
  12. MOTRIN [Concomitant]
     Indication: PRODUCT USED FOR UNKNOWN INDICATION
     Dosage: 100 MG/5 ML, UNKNOWN/D
     Route: 048
  13. ELOCON [Concomitant]
     Indication: PRODUCT USED FOR UNKNOWN INDICATION
     Dosage: 0.1 %, TWICE DAILY
     Route: 061
  14. CYCLOSPORINE [Concomitant]
     Indication: DERMATITIS ATOPIC
     Dosage: 0.4 ML, TWICE DAILY
     Route: 048
     Dates: start: 20130226

REACTIONS (4)
  - Staphylococcal infection [Unknown]
  - Staphylococcal infection [Recovered/Resolved]
  - Dermatitis atopic [Recovered/Resolved]
  - Off label use [Unknown]
